FAERS Safety Report 10249993 (Version 2)
Quarter: 2014Q2

REPORT INFORMATION
  Report Type: Report from Study
  Country: ES (occurrence: ES)
  Receive Date: 20140620
  Receipt Date: 20140624
  Transmission Date: 20141212
  Serious: Yes (Hospitalization)
  Sender: FDA-Public Use
  Company Number: ES-GILEAD-2014-0105091

PATIENT
  Age: 50 Year
  Sex: Female
  Weight: 48 kg

DRUGS (9)
  1. SOFOSBUVIR [Suspect]
     Indication: HEPATITIS C
     Dosage: 400 MG, QD
     Route: 048
     Dates: start: 20140307
  2. RIBAVIRIN [Suspect]
     Indication: HEPATITIS C
     Dosage: 400 MG, BID
     Route: 048
     Dates: start: 20140307
  3. TRUVADA [Concomitant]
     Indication: HIV INFECTION
     Dosage: UNK
     Dates: start: 2012
  4. ISENTRESS [Concomitant]
     Indication: HIV INFECTION
     Dosage: UNK
     Dates: start: 2012
  5. ETRAVIRINE [Concomitant]
     Indication: HIV INFECTION
     Dosage: UNK
     Dates: start: 201403
  6. LORAZEPAM [Concomitant]
     Indication: PROPHYLAXIS
     Dosage: UNK
     Dates: start: 2011
  7. PROPRANOLOL [Concomitant]
     Indication: PROPHYLAXIS
     Dosage: UNK
     Dates: start: 2010
  8. PROPRANOLOL [Concomitant]
     Indication: PROPHYLAXIS
  9. PANTOPRAZOLE [Concomitant]
     Indication: GASTRITIS PROPHYLAXIS
     Dosage: UNK
     Dates: start: 2010

REACTIONS (3)
  - Haemoptysis [Recovered/Resolved]
  - Dyspnoea [Recovered/Resolved]
  - Thrombocytopenia [Recovered/Resolved]
